FAERS Safety Report 5141732-X (Version None)
Quarter: 2006Q4

REPORT INFORMATION
  Report Type: 
  Country: None (occurrence: None)
  Receive Date: 20061027
  Receipt Date: 20061012
  Transmission Date: 20070319
  Serious: Yes (Other)
  Sender: FDA-Public Use
  Company Number: CH200610002212

PATIENT
  Age: 64 Year
  Sex: Male

DRUGS (4)
  1. ZYPREXA [Suspect]
     Dosage: 5 MG, DAILY (1/D), ORAL  : 10 MG, DAILY (1/D), ORAL
     Route: 048
     Dates: start: 20060726, end: 20060726
  2. ZYPREXA [Suspect]
     Dosage: 5 MG, DAILY (1/D), ORAL  : 10 MG, DAILY (1/D), ORAL
     Route: 048
     Dates: start: 20060727, end: 20060729
  3. SEROQUEL [Concomitant]
  4. LORAZEPAM [Concomitant]

REACTIONS (3)
  - EYELID OEDEMA [None]
  - FIBRIN D DIMER INCREASED [None]
  - OEDEMA PERIPHERAL [None]
